FAERS Safety Report 7076505-4 (Version None)
Quarter: 2010Q4

REPORT INFORMATION
  Report Type: 
  Country: None (occurrence: None)
  Receive Date: 20101101
  Receipt Date: 20101021
  Transmission Date: 20110411
  Serious: Yes (Disabling, Other)
  Sender: FDA-Public Use
  Company Number: US-ELI_LILLY_AND_COMPANY-US201010005495

PATIENT
  Age: 39 Year
  Sex: Female

DRUGS (6)
  1. HUMULIN R [Suspect]
     Indication: DIABETES MELLITUS
     Dosage: 6 U, EACH MORNING
  2. HUMULIN N [Suspect]
     Indication: DIABETES MELLITUS
     Dosage: 12 U, EACH MORNING
  3. HUMULIN N [Suspect]
     Dosage: 26 U, EACH EVENING
  4. CINNAMON [Concomitant]
  5. VITAMINS [Concomitant]
  6. DURAGESIC-100 [Concomitant]

REACTIONS (5)
  - BLOOD GLUCOSE INCREASED [None]
  - COMPLEX REGIONAL PAIN SYNDROME [None]
  - DIABETIC NEUROPATHY [None]
  - FALL [None]
  - JOINT INJURY [None]
